FAERS Safety Report 8258270-8 (Version None)
Quarter: 2012Q2

REPORT INFORMATION
  Report Type: 
  Country: None (occurrence: None)
  Receive Date: 20120403
  Receipt Date: 20120403
  Transmission Date: 20120825
  Serious: Yes (Life-Threatening, Hospitalization)
  Sender: FDA-Public Use
  Company Number: None

PATIENT
  Sex: Male

DRUGS (1)
  1. ACTOS TAKEDA 15/ 30MG ONCE A DAY ORAL [Suspect]
     Indication: TYPE 2 DIABETES MELLITUS
     Dosage: 15/30MG ONCE A DAY ORAL
     Route: 048
     Dates: start: 20050701, end: 20100701

REACTIONS (1)
  - BLADDER CANCER [None]
